FAERS Safety Report 12958176 (Version 4)
Quarter: 2017Q1

REPORT INFORMATION
  Report Type: Spontaneous
  Country: US (occurrence: US)
  Receive Date: 20161120
  Receipt Date: 20170105
  Transmission Date: 20170428
  Serious: No
  Sender: FDA-Public Use
  Company Number: US-009507513-1611USA007319

PATIENT
  Age: 5 Year
  Sex: Male

DRUGS (3)
  1. NOXAFIL [Suspect]
     Active Substance: POSACONAZOLE
     Indication: CRANIOCEREBRAL INJURY
     Dosage: UNK
     Route: 042
     Dates: start: 201610
  2. NOXAFIL [Suspect]
     Active Substance: POSACONAZOLE
     Indication: CRANIOCEREBRAL INJURY
     Dosage: UNK
     Route: 048
     Dates: start: 2016
  3. ANTIMICROBIAL (UNSPECIFIED) [Concomitant]
     Active Substance: UNSPECIFIED INGREDIENT

REACTIONS (2)
  - No adverse event [Unknown]
  - Drug administered to patient of inappropriate age [Unknown]

NARRATIVE: CASE EVENT DATE: 201610
